FAERS Safety Report 22346324 (Version 1)
Quarter: 2023Q2

REPORT INFORMATION
  Report Type: Spontaneous
  Country: CN (occurrence: CN)
  Receive Date: 20230519
  Receipt Date: 20230519
  Transmission Date: 20230722
  Serious: Yes (Other)
  Sender: FDA-Public Use
  Company Number: CN-BAUSCH-BL-2023-007328

PATIENT
  Age: 57 Year
  Sex: Female

DRUGS (4)
  1. MINOCYCLINE [Suspect]
     Active Substance: MINOCYCLINE HYDROCHLORIDE
     Indication: Linear IgA disease
     Route: 065
  2. MINOCYCLINE [Suspect]
     Active Substance: MINOCYCLINE HYDROCHLORIDE
  3. METHYLPREDNISOLONE [Suspect]
     Active Substance: METHYLPREDNISOLONE
     Indication: Linear IgA disease
     Route: 065
  4. SULFASALAZINE [Concomitant]
     Active Substance: SULFASALAZINE
     Indication: Linear IgA disease
     Dosage: DISCONTINUED AFTER 1 WEEK DUE TO ALLERGY

REACTIONS (3)
  - Spinal fracture [Unknown]
  - Osteoporosis [Unknown]
  - Drug ineffective [Unknown]
